FAERS Safety Report 23384503 (Version 1)
Quarter: 2024Q1

REPORT INFORMATION
  Report Type: Spontaneous
  Country: FR (occurrence: FR)
  Receive Date: 20240109
  Receipt Date: 20240109
  Transmission Date: 20240410
  Serious: Yes (Hospitalization)
  Sender: FDA-Public Use
  Company Number: None

PATIENT
  Age: 75 Year
  Sex: Male

DRUGS (16)
  1. QUETIAPINE [Suspect]
     Active Substance: QUETIAPINE
     Indication: Schizophrenia
     Dosage: 300 MILLIGRAM, QD (AT 4 P.M)
     Route: 048
     Dates: end: 20231215
  2. QUETIAPINE [Suspect]
     Active Substance: QUETIAPINE
     Dosage: 600 MILLIGRAM, QD (AT 4 P.M)
     Route: 048
     Dates: start: 20231215, end: 20231216
  3. TIAPRIDE HYDROCHLORIDE [Suspect]
     Active Substance: TIAPRIDE HYDROCHLORIDE
     Indication: Schizophrenia
     Dosage: 100 MILLIGRAM, QD (EVENING)
     Route: 048
     Dates: end: 20231216
  4. LOXAPINE [Suspect]
     Active Substance: LOXAPINE
     Indication: Schizophrenia
     Dosage: 150 MILLIGRAM, QD (0.5-0.5-0.5)
     Route: 048
     Dates: end: 20231215
  5. LOXAPINE [Suspect]
     Active Substance: LOXAPINE
     Dosage: 200 MILLIGRAM, QD (0.5-0.5-1)
     Route: 048
     Dates: start: 20231215, end: 20231216
  6. TRIMEPRAZINE [Suspect]
     Active Substance: TRIMEPRAZINE
     Indication: Schizophrenia
     Dosage: 20 MILLIGRAM, QD (0-0-4)
     Route: 048
     Dates: end: 20231216
  7. CHOLECALCIFEROL [Concomitant]
     Active Substance: CHOLECALCIFEROL
     Dosage: 1 DOSAGE FORM, QD (1-0-0)
     Route: 048
  8. DORZOLAMIDE HYDROCHLORIDE\TIMOLOL MALEATE [Concomitant]
     Active Substance: DORZOLAMIDE HYDROCHLORIDE\TIMOLOL MALEATE
     Dosage: 1 DOSAGE FORM, QD (1-0-1)
     Route: 047
  9. LATANOPROST [Concomitant]
     Active Substance: LATANOPROST
     Dosage: 1 DOSAGE FORM, QD (0-0-1)
     Route: 047
  10. MIRTAZAPINE [Concomitant]
     Active Substance: MIRTAZAPINE
     Dosage: 15 MILLIGRAM, QD (0-0-1)
     Route: 048
  11. FERROUS FUMARATE [Concomitant]
     Active Substance: FERROUS FUMARATE
     Dosage: 198 MILLIGRAM, QD (1-1-1)
     Route: 048
  12. EUPANTOL [Concomitant]
     Active Substance: PANTOPRAZOLE SODIUM
     Dosage: 40 MILLIGRAM, QD (0-0-1)
     Route: 048
  13. KARDEGIC [Concomitant]
     Active Substance: ASPIRIN DL-LYSINE
     Dosage: 75 MILLIGRAM, QD (0-0-1),  POWDER FOR ORAL SOLUTION IN SACHET-DOSE
     Route: 048
  14. LEVETIRACETAM [Concomitant]
     Active Substance: LEVETIRACETAM
     Dosage: 1000 MILLIGRAM, QD (1-0-1)
     Route: 048
  15. OXAZEPAM [Concomitant]
     Active Substance: OXAZEPAM
     Dosage: 20 MILLIGRAM, QD (1-0-1)
     Route: 048
  16. TRIHEXYPHENIDYL HYDROCHLORIDE [Concomitant]
     Active Substance: TRIHEXYPHENIDYL HYDROCHLORIDE
     Dosage: 2 MILLIGRAM, QD (1-0-0)
     Route: 048

REACTIONS (1)
  - Schizophrenia [Recovered/Resolved]

NARRATIVE: CASE EVENT DATE: 20231215
